FAERS Safety Report 9082690 (Version 1)
Quarter: 2013Q1

REPORT INFORMATION
  Report Type: Report from Study
  Country: US (occurrence: US)
  Receive Date: 20130130
  Receipt Date: 20130130
  Transmission Date: 20140127
  Serious: No
  Sender: FDA-Public Use
  Company Number: US-ABBOTT-12P-163-0953154-00

PATIENT
  Age: 83 Year
  Sex: Female

DRUGS (5)
  1. HUMIRA 40 MG/0.8 ML PEN [Suspect]
     Indication: PSORIASIS
     Dates: start: 2011
  2. SYNTHROID [Concomitant]
     Indication: THYROID DISORDER
  3. DILTIAZEM [Concomitant]
     Indication: ATRIAL FIBRILLATION
  4. CALTRATE WITH VITAMIN D [Concomitant]
     Indication: OSTEOPOROSIS
  5. MAGNESIUM [Concomitant]
     Indication: MUSCLE SPASMS

REACTIONS (5)
  - Device malfunction [Recovered/Resolved]
  - Incorrect dose administered [Recovered/Resolved]
  - Injection site urticaria [Recovered/Resolved]
  - Injection site pain [Recovered/Resolved]
  - Alopecia [Recovering/Resolving]
